FAERS Safety Report 7940005-7 (Version None)
Quarter: 2011Q4

REPORT INFORMATION
  Report Type: 
  Country: None (occurrence: None)
  Receive Date: 20111125
  Receipt Date: 20111118
  Transmission Date: 20120403
  Serious: Yes (Other)
  Sender: FDA-Public Use
  Company Number: US-PFIZER INC-2011241639

PATIENT
  Sex: Female
  Weight: 53.061 kg

DRUGS (8)
  1. CRESTOR [Concomitant]
     Dosage: UNK
  2. VFEND [Suspect]
     Dosage: UNK
  3. SPIRIVA [Concomitant]
     Dosage: UNK
  4. VFEND [Suspect]
     Indication: BRONCHOPULMONARY ASPERGILLOSIS
     Dosage: 6 ML, 2X/DAY
     Route: 048
     Dates: start: 20111001
  5. MIRAPEX [Concomitant]
     Dosage: UNK
  6. ACTONEL [Concomitant]
     Dosage: UNK
  7. SYNTHROID [Concomitant]
     Dosage: UNK
  8. LASIX [Concomitant]
     Dosage: UNK

REACTIONS (5)
  - VISUAL IMPAIRMENT [None]
  - METAMORPHOPSIA [None]
  - MOTION SICKNESS [None]
  - NAUSEA [None]
  - PHOTOPHOBIA [None]
